FAERS Safety Report 8408163-8 (Version None)
Quarter: 2012Q2

REPORT INFORMATION
  Report Type: 
  Country: None (occurrence: None)
  Receive Date: 20120529
  Receipt Date: 20060118
  Transmission Date: 20120825
  Serious: Yes (Death)
  Sender: FDA-Public Use
  Company Number: 02100-JPN-06-0014

PATIENT
  Age: 68 Year
  Sex: Male

DRUGS (3)
  1. ASPIRIN [Concomitant]
  2. PLETAL [Suspect]
     Dosage: 50 MG, BID, ORAL, 100 MG, BID, ORAL
     Route: 048
     Dates: start: 20051207, end: 20051216
  3. PLETAL [Suspect]
     Dosage: 50 MG, BID, ORAL, 100 MG, BID, ORAL
     Route: 048
     Dates: start: 20050616, end: 20051206

REACTIONS (3)
  - HYPOTENSION [None]
  - CHEST PAIN [None]
  - CORONARY ARTERIAL STENT INSERTION [None]
